FAERS Safety Report 8416432-0 (Version None)
Quarter: 2012Q2

REPORT INFORMATION
  Report Type: 
  Country: None (occurrence: None)
  Receive Date: 20120606
  Receipt Date: 20120529
  Transmission Date: 20120825
  Serious: Yes (Hospitalization)
  Sender: FDA-Public Use
  Company Number: US-BAYER-200942042NA

PATIENT
  Age: 71 Year
  Sex: Female
  Weight: 50 kg

DRUGS (6)
  1. SORAFENIB (RAF KINASE INHIBITOR) [Suspect]
     Route: 048
     Dates: start: 20091110, end: 20091120
  2. XELODA [Suspect]
     Indication: BREAST CANCER METASTATIC
     Route: 048
     Dates: start: 20091030, end: 20091103
  3. SORAFENIB (RAF KINASE INHIBITOR) [Suspect]
     Indication: BREAST CANCER METASTATIC
     Route: 048
     Dates: start: 20091030, end: 20091103
  4. SORAFENIB (RAF KINASE INHIBITOR) [Suspect]
     Route: 048
     Dates: start: 20091125, end: 20091128
  5. XELODA [Suspect]
     Route: 048
     Dates: start: 20091110, end: 20091120
  6. XELODA [Suspect]
     Route: 048
     Dates: start: 20091125, end: 20091129

REACTIONS (1)
  - PULMONARY EMBOLISM [None]
